FAERS Safety Report 23100803 (Version 1)
Quarter: 2023Q4

REPORT INFORMATION
  Report Type: Spontaneous
  Country: US (occurrence: None)
  Receive Date: 20231021
  Receipt Date: 20231021
  Transmission Date: 20240110
  Serious: Yes (Hospitalization)
  Sender: FDA-Public Use
  Company Number: None

PATIENT
  Age: 44 Year
  Sex: Female
  Weight: 54.4 kg

DRUGS (1)
  1. CEFEPIME HYDROCHLORIDE [Suspect]
     Active Substance: CEFEPIME HYDROCHLORIDE
     Dosage: FREQUENCY : ONCE;?
     Route: 042
     Dates: start: 20220405, end: 20220502

REACTIONS (6)
  - Fatigue [None]
  - Hypotension [None]
  - Leukopenia [None]
  - Rash [None]
  - Syncope [None]
  - Thrombocytopenia [None]

NARRATIVE: CASE EVENT DATE: 20220503
